FAERS Safety Report 6661403-8 (Version None)
Quarter: 2010Q1

REPORT INFORMATION
  Report Type: 
  Country: None (occurrence: None)
  Receive Date: 20100331
  Receipt Date: 20100326
  Transmission Date: 20100710
  Serious: Yes (Death, Hospitalization, Other)
  Sender: FDA-Public Use
  Company Number: PHHY2009BR41480

PATIENT
  Sex: Female

DRUGS (3)
  1. ACLASTA [Suspect]
     Dosage: UNK
     Dates: start: 20090917
  2. PARACETAMOL [Concomitant]
  3. CALCIUM [Concomitant]

REACTIONS (9)
  - ARRHYTHMIA [None]
  - BRADYCARDIA [None]
  - DEATH [None]
  - ERYSIPELAS [None]
  - HYPOTENSION [None]
  - MALAISE [None]
  - PAIN [None]
  - PAIN IN EXTREMITY [None]
  - SYNCOPE [None]
